FAERS Safety Report 7447501 (Version 4)
Quarter: 2017Q4

REPORT INFORMATION
  Report Type: Spontaneous
  Country: US (occurrence: US)
  Receive Date: 20100629
  Receipt Date: 20171108
  Transmission Date: 20180321
  Serious: No
  Sender: FDA-Public Use
  Company Number: US-PFIZER INC-2009240259

PATIENT
  Age: 66 Year
  Sex: Female
  Weight: 45.36 kg

DRUGS (2)
  1. ALPRAZOLAM. [Suspect]
     Active Substance: ALPRAZOLAM
     Dosage: 1 MG, 3X/DAY
  2. ALPRAZOLAM. [Suspect]
     Active Substance: ALPRAZOLAM
     Dosage: 0.5 MG, 6 TIMES DAILY

REACTIONS (9)
  - Emotional disorder [Unknown]
  - Depression [Unknown]
  - Agoraphobia [Unknown]
  - Drug ineffective [Unknown]
  - Panic attack [Unknown]
  - Renal disorder [Recovered/Resolved]
  - Hyperhidrosis [Unknown]
  - Insomnia [Unknown]
  - Headache [Unknown]
